FAERS Safety Report 5226421-5 (Version None)
Quarter: 2007Q1

REPORT INFORMATION
  Report Type: 
  Country: None (occurrence: None)
  Receive Date: 20070201
  Receipt Date: 20070125
  Transmission Date: 20070707
  Serious: Yes (Other)
  Sender: FDA-Public Use
  Company Number: US-PFIZER INC-2006153126

PATIENT
  Sex: Male

DRUGS (6)
  1. CHANTIX [Suspect]
     Indication: EX-SMOKER
     Route: 048
  2. RED YEAST RICE [Concomitant]
     Route: 048
  3. FISH OIL [Concomitant]
     Route: 048
  4. CINNAMON [Concomitant]
     Route: 048
  5. SAW PALMETTO [Concomitant]
     Route: 048
  6. KLONOPIN [Concomitant]
     Route: 048

REACTIONS (1)
  - ENLARGED UVULA [None]
